FAERS Safety Report 7090405-5 (Version None)
Quarter: 2010Q4

REPORT INFORMATION
  Report Type: 
  Country: None (occurrence: None)
  Receive Date: 20101012
  Receipt Date: 20100331
  Transmission Date: 20110411
  Serious: Yes (Other)
  Sender: FDA-Public Use
  Company Number: 1000012964

PATIENT
  Age: 76 Year
  Sex: Female

DRUGS (2)
  1. LEXAPRO [Suspect]
     Indication: ANXIETY
     Dosage: 5  MG (5 MG, 1 IN 1 D), ORAL
     Route: 048
     Dates: start: 20100311, end: 20100313
  2. LORAZEPAM [Suspect]
     Indication: ANXIETY
     Dates: start: 20100313, end: 20100313

REACTIONS (3)
  - CONTUSION [None]
  - HYPERTENSION [None]
  - SYNCOPE [None]
